FAERS Safety Report 14700640 (Version 4)
Quarter: 2018Q2

REPORT INFORMATION
  Report Type: Spontaneous
  Country: JP (occurrence: JP)
  Receive Date: 20180330
  Receipt Date: 20180604
  Transmission Date: 20180711
  Serious: Yes (Other)
  Sender: FDA-Public Use
  Company Number: JP-PFIZER INC-2018126806

PATIENT
  Age: 32 Year
  Sex: Male
  Weight: 42.8 kg

DRUGS (22)
  1. ZYVOX [Suspect]
     Active Substance: LINEZOLID
     Indication: SEPSIS
     Dosage: 600 MG, 2X/DAY
     Route: 041
     Dates: start: 20180125, end: 20180205
  2. PHENOBAL [Concomitant]
     Active Substance: PHENOBARBITAL
     Dosage: 120 MG, 1X/DAY
     Dates: start: 20180302
  3. LOXOPROFEN [Concomitant]
     Active Substance: LOXOPROFEN
     Dosage: UNK
  4. VANCOMYCIN [Concomitant]
     Active Substance: VANCOMYCIN
     Dosage: UNK
     Dates: start: 20180111, end: 20180124
  5. CEFMETAZOLE [Interacting]
     Active Substance: CEFMETAZOLE
     Indication: SEPSIS
     Dosage: 1 G, 2X/DAY
     Route: 041
     Dates: start: 20180122, end: 20180204
  6. RIVOTRIL [Interacting]
     Active Substance: CLONAZEPAM
     Dosage: 6 MG, DAILY (DIVIDED IN THREE DOSES)
  7. E KEPPRA [Concomitant]
     Active Substance: LEVETIRACETAM
     Dosage: 1500 MG, DAILY (DEIVIDED IN TWO DOSES)
     Dates: end: 20180206
  8. DAISAIKOTO [Concomitant]
     Active Substance: HERBALS
     Dosage: UNK
  9. ZYVOX [Interacting]
     Active Substance: LINEZOLID
     Indication: DEVICE RELATED INFECTION
  10. E KEPPRA [Concomitant]
     Active Substance: LEVETIRACETAM
     Dosage: 2500 MG, 1X/DAY
     Dates: start: 20180207
  11. NIZATIDINE. [Concomitant]
     Active Substance: NIZATIDINE
     Dosage: UNK
  12. MUCOBULIN [Concomitant]
     Active Substance: AMBROXOL HYDROCHLORIDE
     Dosage: UNK
  13. WYSTAL [Concomitant]
     Active Substance: CEFOPERAZONE SODIUM\SULBACTAM SODIUM
     Dosage: UNK
     Dates: start: 20180106, end: 20180119
  14. PHENOBAL [Concomitant]
     Active Substance: PHENOBARBITAL
     Dosage: 150 MG DAILY (DIVIDED IN THREE DOSES (0.6 G - 0.3 G - 0.6 G))
     Dates: end: 20180301
  15. VALERIN [Concomitant]
     Active Substance: VALPROATE SODIUM
     Dosage: 2000 MG, DAILY (DIVIDED IN TWO DOSES)
  16. FOSPHENYTOIN [Concomitant]
     Active Substance: FOSPHENYTOIN\FOSPHENYTOIN SODIUM
     Dosage: UNK
     Dates: start: 20180201
  17. CEFMETAZOLE [Interacting]
     Active Substance: CEFMETAZOLE
     Indication: DEVICE RELATED INFECTION
  18. CALONAL [Concomitant]
     Active Substance: ACETAMINOPHEN
     Dosage: UNK
  19. ELNEOPA NO.2 [Concomitant]
     Active Substance: AMINO ACIDS\CARBOHYDRATES\ELECTROLYTES NOS\VITAMINS
     Dosage: 1500 ML, 1X/DAY
     Dates: start: 20180122
  20. HANGEKOBOKUTO [Concomitant]
     Active Substance: HERBALS
     Dosage: UNK
  21. TELEMINSOFT [Concomitant]
     Active Substance: BISACODYL
     Dosage: UNK
  22. ALEVIATIN [Concomitant]
     Active Substance: PHENYTOIN SODIUM
     Dosage: UNK
     Dates: start: 20180130

REACTIONS (4)
  - Drug interaction [Recovered/Resolved]
  - Condition aggravated [Recovered/Resolved]
  - Drug level decreased [Recovered/Resolved]
  - Generalised tonic-clonic seizure [Recovered/Resolved]

NARRATIVE: CASE EVENT DATE: 20180125
